FAERS Safety Report 11604444 (Version 1)
Quarter: 2015Q4

REPORT INFORMATION
  Report Type: Spontaneous
  Country: US (occurrence: None)
  Receive Date: 20151006
  Receipt Date: 20151006
  Transmission Date: 20160304
  Serious: Yes (Life-Threatening, Disabling)
  Sender: FDA-Public Use
  Company Number: None

PATIENT
  Age: 49 Year
  Sex: Male

DRUGS (6)
  1. TRAZODONE [Concomitant]
     Active Substance: TRAZODONE HYDROCHLORIDE
  2. CLOZARIL [Suspect]
     Active Substance: CLOZAPINE
     Indication: MENTAL DISORDER
     Dosage: 6 PILLS
     Route: 048
     Dates: start: 20110613, end: 20150905
  3. MULTI VITAMINS [Concomitant]
  4. DEPAKOTE [Concomitant]
     Active Substance: DIVALPROEX SODIUM
  5. KRILL OIL [Concomitant]
     Active Substance: DIETARY SUPPLEMENT
  6. SERTRALINE [Concomitant]
     Active Substance: SERTRALINE HYDROCHLORIDE

REACTIONS (6)
  - Obesity [None]
  - Glucose tolerance impaired [None]
  - Weight increased [None]
  - Dyspnoea [None]
  - Blood cholesterol increased [None]
  - Arthritis [None]

NARRATIVE: CASE EVENT DATE: 20151002
